FAERS Safety Report 21021640 (Version 1)
Quarter: 2022Q2

REPORT INFORMATION
  Report Type: Spontaneous
  Country: JP (occurrence: JP)
  Receive Date: 20220629
  Receipt Date: 20220629
  Transmission Date: 20220721
  Serious: Yes (Other)
  Sender: FDA-Public Use
  Company Number: JP-BAXTER-2022BAX013422

PATIENT
  Age: 63 Year
  Sex: Female

DRUGS (1)
  1. DOXORUBICIN [Suspect]
     Active Substance: DOXORUBICIN
     Indication: Ovarian cancer
     Dosage: 2 CYCLE (50 MG/M2, 1 IN 4 WK)
     Route: 042

REACTIONS (2)
  - Iris neoplasm [Recovering/Resolving]
  - Palmar-plantar erythrodysaesthesia syndrome [Unknown]
